FAERS Safety Report 6338883-0 (Version None)
Quarter: 2009Q3

REPORT INFORMATION
  Report Type: 
  Country: None (occurrence: None)
  Receive Date: 20090903
  Receipt Date: 20090825
  Transmission Date: 20100115
  Serious: Yes (Other)
  Sender: FDA-Public Use
  Company Number: PHHY2009BR36277

PATIENT
  Age: 69 Year
  Sex: Female

DRUGS (13)
  1. LEPONEX [Suspect]
     Indication: SCHIZOPHRENIA
     Dosage: 1 TABLET (25 MG) AT NIGHT
     Dates: start: 20090601
  2. LEPONEX [Suspect]
     Dosage: 1.5 TABLET (25 MG) AT NIGHT
     Dates: start: 20090601
  3. LEPONEX [Suspect]
     Dosage: 2 TABLETS (25 MG) AT NIGHT
     Dates: start: 20090601
  4. LEPONEX [Suspect]
     Dosage: 3 TABLETS (25 MG) AT NIGHT
     Dates: start: 20090601
  5. LEPONEX [Suspect]
     Dosage: 1 TABLET (100 MG) AT NIGHT FOR 1 WEEK
     Route: 048
     Dates: end: 20090722
  6. LEPONEX [Suspect]
     Dosage: 1.5 TABLET (100 MG) AT NIGHT FOR 1 WEEK
     Route: 048
     Dates: start: 20090723
  7. LEPONEX [Suspect]
     Dosage: 2 TABLETS (100 MG) AT NIGHT FOR 1 WEEK
     Route: 048
  8. LEPONEX [Suspect]
     Dosage: 2.5 TABLETS (100 MG) AT NIGHT FOR 1 WEEK
     Route: 048
  9. LEPONEX [Suspect]
     Dosage: 3 TABLETS (100 MG) AT NIGHT FOR 1 WEEK
     Route: 048
  10. LEPONEX [Suspect]
     Dosage: 3.5 TABLETS (100 MG) AT NIGHT FOR 4 DAYS
     Route: 048
  11. LEPONEX [Suspect]
     Dosage: 4 TABLETS (100 MG) AT NIGHT FOR 4 DAYS
     Route: 048
  12. LEPONEX [Suspect]
     Dosage: 4.5 TABLETS (100 MG) AT NIGHT FOR 4 DAYS
     Route: 048
  13. LEPONEX [Suspect]
     Dosage: 5 TABLETS (100 MG) AT NIGHT FOR 4 DAYS
     Route: 048
     Dates: start: 20090824

REACTIONS (3)
  - DRUG INEFFECTIVE [None]
  - INCORRECT DOSE ADMINISTERED [None]
  - PSYCHIATRIC SYMPTOM [None]
